FAERS Safety Report 9571361 (Version 1)
Quarter: 2013Q4

REPORT INFORMATION
  Report Type: Spontaneous
  Country: FR (occurrence: FR)
  Receive Date: 20131001
  Receipt Date: 20131001
  Transmission Date: 20140711
  Serious: Yes (Hospitalization)
  Sender: FDA-Public Use
  Company Number: FR-NOVOPROD-388386

PATIENT
  Age: 57 Year
  Sex: Male

DRUGS (3)
  1. NOVORAPID [Suspect]
     Indication: INSULIN-REQUIRING TYPE 2 DIABETES MELLITUS
     Dosage: 17 IU, QD (5 IU IN MORNING, 5 IU AT NOON AND 7 IU IN EVENING)
     Route: 058
     Dates: end: 20130902
  2. LANTUS [Suspect]
     Indication: INSULIN-REQUIRING TYPE 2 DIABETES MELLITUS
     Dosage: 38 IU, QD
     Route: 058
     Dates: end: 20130902
  3. TAHOR [Concomitant]
     Dosage: 10 MG, QD
     Route: 048
     Dates: end: 20130902

REACTIONS (2)
  - Disturbance in attention [Recovered/Resolved]
  - Hypoglycaemia [Recovered/Resolved]
